FAERS Safety Report 9509830 (Version 2)
Quarter: 2013Q3

REPORT INFORMATION
  Report Type: Spontaneous
  Country: US (occurrence: US)
  Receive Date: 20130909
  Receipt Date: 20130909
  Transmission Date: 20140515
  Serious: No
  Sender: FDA-Public Use
  Company Number: US-BRISTOL-MYERS SQUIBB COMPANY-17115296

PATIENT
  Age: 44 Year
  Sex: Female

DRUGS (2)
  1. ABILIFY [Suspect]
     Indication: MAJOR DEPRESSION
     Dosage: 7.5 MG DAILY; STOPPED APPROX ON 2NOV12.
     Route: 048
     Dates: start: 20120820, end: 20121102
  2. WELLBUTRIN SR [Suspect]
     Indication: MAJOR DEPRESSION
     Dosage: STOPPED APPROX ON 2NOV12.
     Dates: start: 20120612

REACTIONS (1)
  - Swelling [Recovered/Resolved]
